FAERS Safety Report 7630569-5 (Version None)
Quarter: 2011Q3

REPORT INFORMATION
  Report Type: 
  Country: None (occurrence: None)
  Receive Date: 20110722
  Receipt Date: 20110718
  Transmission Date: 20111222
  Serious: Yes (Life-Threatening, Other)
  Sender: FDA-Public Use
  Company Number: CN-GENZYME-FLUD-1001257

PATIENT
  Sex: Female
  Weight: 56 kg

DRUGS (2)
  1. FLUDARA [Suspect]
     Indication: ACUTE MYELOID LEUKAEMIA
     Dosage: 30 MG/M2, QD ON DAYS 1 THROUGH 5
     Route: 042
     Dates: start: 20110525, end: 20110529
  2. CYTARABINE [Suspect]
     Indication: ACUTE MYELOID LEUKAEMIA
     Dosage: 2 G/M2, QD ON DAYS 1 THROUGH 5
     Route: 042
     Dates: start: 20110525, end: 20110529

REACTIONS (3)
  - PYREXIA [None]
  - SEPTIC SHOCK [None]
  - OLIGURIA [None]
